FAERS Safety Report 24689086 (Version 1)
Quarter: 2024Q4

REPORT INFORMATION
  Report Type: Report from Study
  Country: US (occurrence: US)
  Receive Date: 20241203
  Receipt Date: 20241203
  Transmission Date: 20250115
  Serious: Yes (Hospitalization, Other)
  Sender: JOHNSON AND JOHNSON
  Company Number: US-JNJFOC-20241165170

PATIENT
  Age: 48 Year
  Sex: Female

DRUGS (3)
  1. SPRAVATO [Suspect]
     Active Substance: ESKETAMINE
     Indication: Depression
     Dosage: 84 MG, TOTAL OF 5 DOSES
     Route: 045
     Dates: start: 20241008, end: 20241022
  2. SPRAVATO [Suspect]
     Active Substance: ESKETAMINE
     Dosage: 56 MG, TOTAL OF 3 DOSES
     Route: 045
     Dates: start: 20241030, end: 20241112
  3. SPRAVATO [Suspect]
     Active Substance: ESKETAMINE
     Dosage: 56 MG, TOTAL OF 2 DOSES
     Route: 045
     Dates: start: 20241002, end: 20241004

REACTIONS (1)
  - Surgery [Unknown]

NARRATIVE: CASE EVENT DATE: 20240101
